FAERS Safety Report 15420385 (Version 6)
Quarter: 2019Q1

REPORT INFORMATION
  Report Type: Report from Study
  Country: ES (occurrence: ES)
  Receive Date: 20180924
  Receipt Date: 20190328
  Transmission Date: 20190417
  Serious: Yes (Hospitalization, Disabling, Other)
  Sender: FDA-Public Use
  Company Number: ES-SA-2018SA260207

PATIENT
  Age: 33 Year
  Sex: Male
  Weight: 63 kg

DRUGS (21)
  1. ACYCLOVIR [ACICLOVIR] [Concomitant]
     Active Substance: ACYCLOVIR
     Indication: PROPHYLAXIS
     Dosage: 200 (NOS), BID
     Route: 065
     Dates: start: 20180129, end: 20180226
  2. MIRABEGRON [Concomitant]
     Active Substance: MIRABEGRON
     Indication: NEUROGENIC BLADDER
     Dosage: 50 (NOS), QD
     Route: 065
     Dates: start: 20161107, end: 20180210
  3. LIORESAL [Concomitant]
     Active Substance: BACLOFEN
     Indication: MUSCLE SPASTICITY
     Dosage: 10 (NOS), Q12H
     Route: 065
     Dates: start: 20171129
  4. HIDROFEROL [Concomitant]
     Active Substance: CALCIFEDIOL
     Indication: VITAMIN D DEFICIENCY
     Dosage: 0.266 (NOS), Q2W
     Route: 065
     Dates: start: 20170522, end: 20180225
  5. PARACETAMOL [Concomitant]
     Active Substance: ACETAMINOPHEN
     Dosage: 1 G, Q12H
     Route: 065
     Dates: start: 20180129, end: 20180202
  6. PARACETAMOL [Concomitant]
     Active Substance: ACETAMINOPHEN
     Dosage: 1000 UNK, Q12H
     Route: 065
     Dates: start: 20190204, end: 20190206
  7. METOCLOPRAMIDE. [Concomitant]
     Active Substance: METOCLOPRAMIDE
     Dosage: 10 UNK, Q8H
     Route: 065
     Dates: start: 20190204, end: 20190206
  8. METHYLPREDNISOLONE. [Concomitant]
     Active Substance: METHYLPREDNISOLONE
     Indication: PREMEDICATION
     Dosage: 1 G, QD
     Route: 065
     Dates: start: 20180129, end: 20180202
  9. OMEPRAZOLE. [Concomitant]
     Active Substance: OMEPRAZOLE
     Dosage: 20 UNK, QD
     Dates: start: 20190204, end: 20190206
  10. FAMPYRA [Concomitant]
     Active Substance: DALFAMPRIDINE
     Indication: GAIT DISTURBANCE
     Dosage: 10 (NOS), BID
     Route: 065
     Dates: start: 20180408
  11. LEVITRA [Concomitant]
     Active Substance: VARDENAFIL HYDROCHLORIDE TRIHYDRATE
     Indication: ERECTILE DYSFUNCTION
     Dosage: 5 MG, QD
     Route: 065
     Dates: start: 20161121
  12. ZONEGRAN [Concomitant]
     Active Substance: ZONISAMIDE
     Indication: TREMOR
     Dosage: 25 (NOS), Q12H
     Route: 065
     Dates: start: 20180215, end: 20181220
  13. SERC [BETAHISTINE HYDROCHLORIDE] [Concomitant]
     Indication: AUTONOMIC NERVOUS SYSTEM IMBALANCE
     Dosage: 24 (NOS), EVERY 8 (NOS)
     Route: 065
     Dates: start: 20170417, end: 20180210
  14. RIVOTRIL [Concomitant]
     Active Substance: CLONAZEPAM
     Indication: TREMOR
     Dosage: 0.5 (NOS) 1 AMPULE, Q8H
     Route: 065
     Dates: start: 20171114
  15. DEXCHLORPHENIRAMINE [Concomitant]
     Active Substance: DEXCHLORPHENIRAMINE
     Indication: PREMEDICATION
     Dosage: 1 DF, Q8H
     Route: 065
     Dates: start: 20180129, end: 20180202
  16. DEXCHLORPHENIRAMINE [Concomitant]
     Active Substance: DEXCHLORPHENIRAMINE
     Dosage: 1 DF, Q8H
     Route: 065
     Dates: start: 20190204, end: 20190206
  17. ALEMTUZUMAB [Suspect]
     Active Substance: ALEMTUZUMAB
     Indication: RELAPSING-REMITTING MULTIPLE SCLEROSIS
     Dosage: UNK, UNK
     Route: 041
     Dates: start: 20180129, end: 20180202
  18. ALEMTUZUMAB [Suspect]
     Active Substance: ALEMTUZUMAB
     Dosage: UNK, UNK
     Route: 041
     Dates: start: 20190204
  19. METOCLOPRAMIDE. [Concomitant]
     Active Substance: METOCLOPRAMIDE
     Indication: PREMEDICATION
     Dosage: 10 UNK, Q8H
     Route: 065
     Dates: start: 20180129, end: 20180202
  20. OMEPRAZOLE. [Concomitant]
     Active Substance: OMEPRAZOLE
     Indication: PREMEDICATION
     Dosage: 20 UNK, QD
     Dates: start: 20180129, end: 20180202
  21. SOLU MODERIN [Concomitant]
     Active Substance: METHYLPREDNISOLONE SODIUM SUCCINATE
     Dosage: 1 G, QD
     Route: 065
     Dates: start: 20190204, end: 20190206

REACTIONS (7)
  - Pyrexia [Recovered/Resolved]
  - Pulmonary embolism [Recovering/Resolving]
  - Renal infarct [Recovering/Resolving]
  - Acute kidney injury [Recovered/Resolved]
  - Multiple sclerosis relapse [Recovered/Resolved]
  - Urinary retention [Recovered/Resolved]
  - Urinary tract infection [Recovered/Resolved]

NARRATIVE: CASE EVENT DATE: 20180205
